FAERS Safety Report 10168622 (Version 1)
Quarter: 2014Q2

REPORT INFORMATION
  Report Type: Report from Study
  Country: US (occurrence: US)
  Receive Date: 20140513
  Receipt Date: 20140513
  Transmission Date: 20141212
  Serious: Yes (Other)
  Sender: FDA-Public Use
  Company Number: US-JNJFOC-20140502998

PATIENT
  Sex: Male

DRUGS (15)
  1. XARELTO [Suspect]
     Indication: THROMBOSIS
     Route: 048
     Dates: start: 201301, end: 201307
  2. XARELTO [Suspect]
     Indication: THROMBOSIS
     Route: 048
     Dates: start: 201404
  3. XARELTO [Suspect]
     Indication: THROMBOSIS
     Route: 048
     Dates: start: 2014, end: 201404
  4. XARELTO [Suspect]
     Indication: THROMBOSIS
     Route: 048
     Dates: start: 2014, end: 2014
  5. LEVOTHYROXINE [Concomitant]
     Indication: HYPOTHYROIDISM
     Route: 048
     Dates: start: 2014
  6. LYRICA [Concomitant]
     Indication: NEUROPATHY PERIPHERAL
     Route: 048
     Dates: start: 2013
  7. ACETAMINOPHEN/HYDROCODONE [Concomitant]
     Indication: PAIN
     Route: 048
     Dates: start: 201403
  8. GLYBURIDE [Concomitant]
     Indication: DIABETES MELLITUS
     Route: 048
     Dates: start: 2013
  9. OMEPRAZOLE [Concomitant]
     Indication: ULCER
     Route: 048
     Dates: start: 2014
  10. TRAMADOL [Concomitant]
     Indication: PAIN
     Route: 048
     Dates: start: 2014
  11. FENOFIBRIC ACID [Concomitant]
     Indication: PRODUCT USED FOR UNKNOWN INDICATION
     Route: 048
     Dates: start: 2013
  12. MONTELUKAST [Concomitant]
     Indication: PRODUCT USED FOR UNKNOWN INDICATION
     Route: 048
     Dates: start: 2012
  13. FLUTICASONE [Concomitant]
     Indication: MULTIPLE ALLERGIES
     Dosage: 1 SPRAY EACH NOSTRIL
     Route: 055
     Dates: start: 2012
  14. FLUTICASONE [Concomitant]
     Indication: SINUS DISORDER
     Dosage: 1 SPRAY EACH NOSTRIL
     Route: 055
     Dates: start: 2012
  15. METOPROLOL [Concomitant]
     Indication: HYPERTENSION
     Route: 048

REACTIONS (5)
  - Oedema peripheral [Not Recovered/Not Resolved]
  - Dyspnoea [Not Recovered/Not Resolved]
  - Chest pain [Not Recovered/Not Resolved]
  - Pain in extremity [Not Recovered/Not Resolved]
  - Incorrect dose administered [Unknown]
